FAERS Safety Report 26038838 (Version 1)
Quarter: 2025Q4

REPORT INFORMATION
  Report Type: Report from Study
  Country: US (occurrence: US)
  Receive Date: 20251113
  Receipt Date: 20251113
  Transmission Date: 20260117
  Serious: Yes (Other)
  Sender: INSMED
  Company Number: US-INSMED, INC.-2022-01523-US

PATIENT
  Sex: Male

DRUGS (2)
  1. ARIKAYCE [Suspect]
     Active Substance: AMIKACIN
     Indication: Mycobacterium avium complex infection
     Dosage: 590 MILLIGRAM, QD
     Route: 055
     Dates: start: 20220520, end: 20220801
  2. ARIKAYCE [Suspect]
     Active Substance: AMIKACIN
     Dosage: 590 MILLIGRAM, QD
     Route: 055
     Dates: start: 2022, end: 202509

REACTIONS (11)
  - Heart rate increased [Unknown]
  - Decreased appetite [Unknown]
  - Skin discolouration [Not Recovered/Not Resolved]
  - Physiotherapy [Unknown]
  - Pruritus [Not Recovered/Not Resolved]
  - Rash [Recovered/Resolved]
  - Adverse drug reaction [Unknown]
  - Dyspnoea [Recovering/Resolving]
  - Drug dose omission by device [Unknown]
  - Device issue [Unknown]
  - Wrong device used [Unknown]

NARRATIVE: CASE EVENT DATE: 20220101
